FAERS Safety Report 24641045 (Version 1)
Quarter: 2024Q4

REPORT INFORMATION
  Report Type: Spontaneous
  Country: FR (occurrence: FR)
  Receive Date: 20241120
  Receipt Date: 20241120
  Transmission Date: 20250114
  Serious: Yes (Hospitalization, Other)
  Sender: AUROBINDO
  Company Number: FR-AFSSAPS-AVNT2024000839

PATIENT
  Age: 35 Year
  Sex: Female

DRUGS (1)
  1. OXYCODONE [Suspect]
     Active Substance: OXYCODONE
     Indication: Product used for unknown indication
     Dosage: UNK,OXYCONTIN 30 MG/JOXYNORMORO 40 TO 120 MG/DAY
     Route: 048
     Dates: start: 2019

REACTIONS (1)
  - Drug dependence [Not Recovered/Not Resolved]
